FAERS Safety Report 12841519 (Version 2)
Quarter: 2016Q4

REPORT INFORMATION
  Report Type: Report from Study
  Country: DE (occurrence: DE)
  Receive Date: 20161012
  Receipt Date: 20161013
  Transmission Date: 20170207
  Serious: Yes (Hospitalization, Other)
  Sender: FDA-Public Use
  Company Number: DE-B.I. PHARMACEUTICALS,INC./RIDGEFIELD-2016-BI-43209BI

PATIENT
  Age: 61 Year
  Sex: Male
  Weight: 101 kg

DRUGS (11)
  1. DISALUNIL [Concomitant]
     Active Substance: HYDROCHLOROTHIAZIDE
     Indication: HYPERTENSION
     Route: 048
  2. PANTOZOL [Concomitant]
     Active Substance: PANTOPRAZOLE SODIUM
     Indication: PROPHYLAXIS
     Route: 048
     Dates: start: 20160704, end: 20160714
  3. TAMSUBLOK [Concomitant]
     Indication: POLYURIA
     Route: 048
     Dates: start: 20160317
  4. ACC [Concomitant]
     Active Substance: ACETYLCYSTEINE
     Indication: PROPHYLAXIS
     Route: 048
     Dates: start: 20160704, end: 20160714
  5. LACTULOSE. [Concomitant]
     Active Substance: LACTULOSE
     Indication: LAXATIVE SUPPORTIVE CARE
     Route: 048
     Dates: start: 20160704, end: 20160714
  6. MCP [Concomitant]
     Active Substance: METOCLOPRAMIDE HYDROCHLORIDE
     Indication: ANTIEMETIC SUPPORTIVE CARE
     Route: 048
     Dates: start: 20160704, end: 20160714
  7. BERLOSIN [Concomitant]
     Active Substance: METAMIZOLE
     Indication: PAIN MANAGEMENT
     Route: 048
     Dates: start: 20160704, end: 20160714
  8. BI PRETERAX [Concomitant]
     Indication: LAXATIVE SUPPORTIVE CARE
     Dosage: 5/1.25 MG
     Route: 048
     Dates: start: 20160704, end: 20160714
  9. BLINDED DABIGATRAN [Suspect]
     Active Substance: DABIGATRAN ETEXILATE
     Indication: CEREBROVASCULAR ACCIDENT PROPHYLAXIS
     Route: 048
     Dates: start: 20150107, end: 20160630
  10. DELIX [Concomitant]
     Active Substance: RAMIPRIL
     Indication: HYPERTENSION
     Route: 048
  11. SIMVASTATIN. [Concomitant]
     Active Substance: SIMVASTATIN
     Indication: HYPERLIPIDAEMIA
     Route: 048

REACTIONS (2)
  - Colon cancer [Recovered/Resolved]
  - Metastases to liver [Not Recovered/Not Resolved]

NARRATIVE: CASE EVENT DATE: 20160627
